FAERS Safety Report 18562071 (Version 1)
Quarter: 2020Q4

REPORT INFORMATION
  Report Type: Report from Study
  Country: DE (occurrence: DE)
  Receive Date: 20201130
  Receipt Date: 20201130
  Transmission Date: 20210114
  Serious: Yes (Hospitalization, Disabling, Other)
  Sender: FDA-Public Use
  Company Number: DE-TAKEDA-DE202029908

PATIENT

DRUGS (28)
  1. TEDUGLUTIDE [Suspect]
     Active Substance: TEDUGLUTIDE
     Dosage: 1.6 MILLIGRAM (0.03 MILLIGRAM/KILOGRAM), 7 DOSES PER WEEK
     Route: 065
     Dates: start: 20190711, end: 20200204
  2. TEDUGLUTIDE [Suspect]
     Active Substance: TEDUGLUTIDE
     Dosage: 1.4 MILLIGRAM (0.04 MILLIGRAM/KILOGRAM), 7 DOSES PER WEEK
     Route: 065
     Dates: start: 20200205
  3. TEDUGLUTIDE [Suspect]
     Active Substance: TEDUGLUTIDE
     Dosage: 3 MILLIGRAM (0.05 MILLIGRAM/KILOGRAM), 7 DOSES PER WEEK
     Route: 065
     Dates: start: 201807, end: 201811
  4. TEDUGLUTIDE [Suspect]
     Active Substance: TEDUGLUTIDE
     Dosage: 3 MILLIGRAM (0.05 MILLIGRAM/KILOGRAM), 7 DOSES PER WEEK
     Route: 065
     Dates: start: 201807, end: 201811
  5. TEDUGLUTIDE [Suspect]
     Active Substance: TEDUGLUTIDE
     Dosage: 3 MILLIGRAM (0.05 MILLIGRAM/KILOGRAM), 7 DOSES PER WEEK
     Route: 065
     Dates: start: 201807, end: 201811
  6. TEDUGLUTIDE [Suspect]
     Active Substance: TEDUGLUTIDE
     Dosage: 3 MILLIGRAM (0.05 MILLIGRAM/KILOGRAM), 7 DOSES PER WEEK
     Route: 065
     Dates: start: 201807, end: 201811
  7. CEFUROXIM [CEFUROXIME] [Concomitant]
     Active Substance: CEFUROXIME
     Indication: INFECTION
     Dosage: 750 MILLIGRAM, TID
     Route: 042
     Dates: start: 20201019, end: 20201023
  8. TEDUGLUTIDE [Suspect]
     Active Substance: TEDUGLUTIDE
     Dosage: 1.25 MILLIGRAM (0.02 MILLIGRAM/KILOGRAM), 7 DOSES PER WEEK
     Route: 065
     Dates: start: 20190117, end: 20190710
  9. TEDUGLUTIDE [Suspect]
     Active Substance: TEDUGLUTIDE
     Dosage: 1.6 MILLIGRAM (0.03 MILLIGRAM/KILOGRAM), 7 DOSES PER WEEK
     Route: 065
     Dates: start: 20190711, end: 20200204
  10. TEDUGLUTIDE [Suspect]
     Active Substance: TEDUGLUTIDE
     Dosage: 1.4 MILLIGRAM (0.04 MILLIGRAM/KILOGRAM), 7 DOSES PER WEEK
     Route: 065
     Dates: start: 20200205
  11. BICANORM [Concomitant]
     Active Substance: SODIUM BICARBONATE
     Indication: CHRONIC KIDNEY DISEASE
  12. FERMED [CEFACLOR] [Concomitant]
     Indication: ANAEMIA
     Dosage: 100 MILLIGRAM, 1/WEEK
     Route: 042
     Dates: start: 20190722, end: 20190805
  13. TEDUGLUTIDE [Suspect]
     Active Substance: TEDUGLUTIDE
     Indication: SHORT-BOWEL SYNDROME
     Dosage: 2.65 MILLIGRAM (0.05 MILLIGRAM/KILOGRAM), 7 DOSES PER WEEK
     Route: 065
     Dates: start: 20180306, end: 201807
  14. TEDUGLUTIDE [Suspect]
     Active Substance: TEDUGLUTIDE
     Dosage: 1.4 MILLIGRAM (0.04 MILLIGRAM/KILOGRAM), 7 DOSES PER WEEK
     Route: 065
     Dates: start: 20200205
  15. FRUBIASE CALCIUM FORTE [Concomitant]
     Indication: SHORT-BOWEL SYNDROME
     Dosage: 350 MILLIGRAM, TWICE A DAY
     Route: 048
     Dates: start: 20200122
  16. SELENASE [SODIUM SELENATE] [Concomitant]
     Indication: SELENIUM DEFICIENCY
     Dosage: 0.05 MILLIGRAM, ONCE A DAY
     Dates: start: 201901
  17. TEDUGLUTIDE [Suspect]
     Active Substance: TEDUGLUTIDE
     Dosage: 1.25 MILLIGRAM (0.02 MILLIGRAM/KILOGRAM), 7 DOSES PER WEEK
     Route: 065
     Dates: start: 20190117, end: 20190710
  18. TEDUGLUTIDE [Suspect]
     Active Substance: TEDUGLUTIDE
     Dosage: 1.25 MILLIGRAM (0.02 MILLIGRAM/KILOGRAM), 7 DOSES PER WEEK
     Route: 065
     Dates: start: 20190117, end: 20190710
  19. TEDUGLUTIDE [Suspect]
     Active Substance: TEDUGLUTIDE
     Dosage: 1.25 MILLIGRAM (0.02 MILLIGRAM/KILOGRAM), 7 DOSES PER WEEK
     Route: 065
     Dates: start: 20190117, end: 20190710
  20. TEDUGLUTIDE [Suspect]
     Active Substance: TEDUGLUTIDE
     Dosage: 1.4 MILLIGRAM (0.04 MILLIGRAM/KILOGRAM), 7 DOSES PER WEEK
     Route: 065
     Dates: start: 20200205
  21. PIPERACILLIN/TAZOBACTAM [Concomitant]
     Active Substance: PIPERACILLIN SODIUM\TAZOBACTAM SODIUM
     Indication: INFECTION
     Dosage: 4 GRAM, BID
     Route: 042
     Dates: start: 20201026
  22. TEDUGLUTIDE [Suspect]
     Active Substance: TEDUGLUTIDE
     Dosage: 1.6 MILLIGRAM (0.03 MILLIGRAM/KILOGRAM), 7 DOSES PER WEEK
     Route: 065
     Dates: start: 20190711, end: 20200204
  23. FRUBIASE CALCIUM FORTE [Concomitant]
     Indication: SHORT-BOWEL SYNDROME
     Dosage: 350 MILLIGRAM, BID
     Route: 048
     Dates: start: 20200122
  24. TEDUGLUTIDE [Suspect]
     Active Substance: TEDUGLUTIDE
     Indication: SHORT-BOWEL SYNDROME
     Dosage: 2.65 MILLIGRAM (0.05 MILLIGRAM/KILOGRAM), 7 DOSES PER WEEK
     Route: 065
     Dates: start: 20180306, end: 201807
  25. TEDUGLUTIDE [Suspect]
     Active Substance: TEDUGLUTIDE
     Indication: SHORT-BOWEL SYNDROME
     Dosage: 2.65 MILLIGRAM (0.05 MILLIGRAM/KILOGRAM), 7 DOSES PER WEEK
     Route: 065
     Dates: start: 20180306, end: 201807
  26. TEDUGLUTIDE [Suspect]
     Active Substance: TEDUGLUTIDE
     Indication: SHORT-BOWEL SYNDROME
     Dosage: 2.65 MILLIGRAM (0.05 MILLIGRAM/KILOGRAM), 7 DOSES PER WEEK
     Route: 065
     Dates: start: 20180306, end: 201807
  27. TEDUGLUTIDE [Suspect]
     Active Substance: TEDUGLUTIDE
     Dosage: 1.6 MILLIGRAM (0.03 MILLIGRAM/KILOGRAM), 7 DOSES PER WEEK
     Route: 065
     Dates: start: 20190711, end: 20200204
  28. FERMED [SACCHARATED IRON OXIDE] [Concomitant]
     Indication: ANAEMIA
     Dosage: 100 MILLIGRAM, 1/WEEK
     Route: 042
     Dates: start: 20190722, end: 20190805

REACTIONS (22)
  - Blood creatinine increased [Recovered/Resolved]
  - Nasopharyngitis [Recovered/Resolved]
  - Anaemia [Recovered/Resolved]
  - Blood selenium decreased [Not Recovered/Not Resolved]
  - Scar [Recovered/Resolved]
  - Haemangioma [Recovered/Resolved]
  - Hypercalcaemia [Recovered/Resolved]
  - Decreased appetite [Recovered/Resolved]
  - Device dislocation [Recovered/Resolved]
  - Haematoma [Recovered/Resolved]
  - Herpes zoster [Recovered/Resolved]
  - Prerenal failure [Recovered/Resolved]
  - Sleep disorder [Recovered/Resolved]
  - Device related infection [Recovered/Resolved]
  - Osteopenia [Not Recovered/Not Resolved]
  - Arthralgia [Recovered/Resolved]
  - Infection [Recovered/Resolved]
  - Eye infection [Recovered/Resolved with Sequelae]
  - Hypervitaminosis A [Recovered/Resolved]
  - Muscle spasms [Recovered/Resolved]
  - Arthritis [Recovered/Resolved]
  - Electrolyte imbalance [Recovered/Resolved]

NARRATIVE: CASE EVENT DATE: 201807
